FAERS Safety Report 8766954 (Version 2)
Quarter: 2012Q4

REPORT INFORMATION
  Report Type: 
  Country: BR (occurrence: BR)
  Receive Date: 20120904
  Receipt Date: 20120904
  Transmission Date: 20130627
  Serious: Yes (Other)
  Sender: FDA-Public Use
  Company Number: BR-PFIZER INC-2012204725

PATIENT
  Sex: Female

DRUGS (7)
  1. FRONTAL XR [Suspect]
     Indication: PANIC DISORDER
     Dosage: 0.5 mg in the morning, 0.5mg at night
  2. FRONTAL XR [Suspect]
     Indication: DEPRESSION
  3. EUTIROX [Concomitant]
     Dosage: UNK, 1x/day in fasting
  4. CITALOPRAM [Concomitant]
     Dosage: 20 mg, 1x/day
  5. RIVOTRIL [Concomitant]
     Dosage: 2 mg 1x/day and more 0.5 mg at night when necessary
  6. GLIFAGE XR [Concomitant]
     Indication: PROPHYLAXIS
     Dosage: UNK
  7. ENALAPRIL MALEATE [Concomitant]
     Indication: HYPERTENSION
     Dosage: 20 mg, daily

REACTIONS (4)
  - Drug dependence [Unknown]
  - Thyroid neoplasm [Unknown]
  - Blood pressure increased [Unknown]
  - Lactose intolerance [Not Recovered/Not Resolved]
